FAERS Safety Report 20304828 (Version 2)
Quarter: 2022Q1

REPORT INFORMATION
  Report Type: Spontaneous
  Country: NL (occurrence: NL)
  Receive Date: 20220106
  Receipt Date: 20220120
  Transmission Date: 20220423
  Serious: Yes (Death, Life-Threatening, Other)
  Sender: FDA-Public Use
  Company Number: None

PATIENT
  Sex: Female
  Weight: 92 kg

DRUGS (17)
  1. AMIODARONE [Suspect]
     Active Substance: AMIODARONE
     Indication: Arrhythmia
     Dosage: 200 MILLIGRAM, QD (1 X PER DAY 1)
     Dates: start: 2018, end: 20211209
  2. SPIRONOLACTONE [Concomitant]
     Active Substance: SPIRONOLACTONE
     Dosage: 12.5 MILLIGRAM, QD, 1 DD 1
     Route: 048
     Dates: start: 20211103
  3. PANTOPRAZOLE SODIUM [Concomitant]
     Active Substance: PANTOPRAZOLE SODIUM
     Dosage: 40 MILLIGRAM, QD, 1 DD 1
     Route: 048
     Dates: start: 20210823, end: 20211016
  4. CALCIUM CARBIMIDE [Concomitant]
     Active Substance: CALCIUM CARBIMIDE
     Dosage: 1 DOSAGE FORM, QD, 1 DD 1
     Route: 048
     Dates: start: 20210823, end: 20211208
  5. POLYETHYLENE GLYCOLS [Concomitant]
     Active Substance: POLYETHYLENE GLYCOLS
     Dosage: UNK (IF NECESSARY USE IN CASE OF HARD STOOLS)
     Route: 048
     Dates: start: 20210823
  6. ACETAMINOPHEN [Concomitant]
     Active Substance: ACETAMINOPHEN
     Dosage: 1 DOSAGE FORM, Q8H,3 X PER DAY PIECES
     Route: 048
     Dates: start: 20211014
  7. DULOXETINE [Concomitant]
     Active Substance: DULOXETINE
     Dosage: 30 MILLIGRAM, QD, 1 DD 1
     Route: 048
     Dates: start: 20210823, end: 20211015
  8. LACTULOSE [Concomitant]
     Active Substance: LACTULOSE
     Dosage: 30 MILLILITER, Q8H, 3 DD 30 ML
     Route: 048
     Dates: start: 20210902
  9. Lidocaine vaselinecreme 3% FNA [Concomitant]
     Dosage: 1 DOSAGE FORM, 2 DD
     Route: 003
     Dates: start: 20211119
  10. POTASSIUM CHLORIDE [Concomitant]
     Active Substance: POTASSIUM CHLORIDE
     Dosage: 600 MILLIGRAM, Q8H, 3 DD 1
     Route: 048
     Dates: start: 20211123, end: 20211208
  11. CARVEDILOL [Concomitant]
     Active Substance: CARVEDILOL
     Dosage: 6.25 MILLIGRAM, Q8H, 3 DD 1
     Route: 048
     Dates: start: 20210823
  12. BUPIVACAINE HYDROCHLORIDE\FENTANYL CITRATE [Concomitant]
     Active Substance: BUPIVACAINE HYDROCHLORIDE\FENTANYL CITRATE
     Dosage: 1 DOSAGE FORM, Q3D, 1  X PER 3 DAY 1 PLASTER
     Route: 062
     Dates: start: 20210823, end: 20211014
  13. AMLODIPINE [Concomitant]
     Active Substance: AMLODIPINE BESYLATE
     Dosage: 5 MILLIGRAM, QD, 1 DD 1
     Route: 048
     Dates: start: 20210823
  14. Fosfomycine 3 g focus [Concomitant]
     Dosage: 3 GRAM, QD, 1 DD 1
     Route: 048
     Dates: start: 20211109, end: 20211111
  15. APIXABAN [Concomitant]
     Active Substance: APIXABAN
     Dosage: 5 MILLIGRAM, BID, 2 DD 1
     Route: 048
     Dates: start: 20210823
  16. LEVOTHYROXINE [Concomitant]
     Active Substance: LEVOTHYROXINE
     Dosage: 100 MICROGRAM, QD, 1 DD 1
     Route: 048
     Dates: start: 20211023
  17. ROSUVASTATIN [Concomitant]
     Active Substance: ROSUVASTATIN
     Dosage: 5 MILLIGRAM, QD, 1 DD 1
     Route: 048
     Dates: start: 20210823, end: 20211208

REACTIONS (2)
  - Hepatic cirrhosis [Fatal]
  - Varices oesophageal [Not Recovered/Not Resolved]
